FAERS Safety Report 7765336-5 (Version None)
Quarter: 2011Q3

REPORT INFORMATION
  Report Type: 
  Country: None (occurrence: None)
  Receive Date: 20110921
  Receipt Date: 20110906
  Transmission Date: 20111222
  Serious: Yes (Life-Threatening, Hospitalization)
  Sender: FDA-Public Use
  Company Number: IN-BAYER-2011-083817

PATIENT
  Age: 28 Year
  Sex: Female

DRUGS (5)
  1. ALCOHOL [Suspect]
     Dosage: UNK 8-10 BOTTLES OF BEER
     Route: 048
  2. ACETAMINOPHEN [Suspect]
     Indication: SUICIDE ATTEMPT
     Dosage: 19500 MG, ONCE
     Route: 048
  3. METHAMPHETAMINE HYDROCHLORIDE [Suspect]
  4. PHENYTOIN [Concomitant]
     Indication: CONVULSION
  5. ANTIDEPRESSANTS [Concomitant]

REACTIONS (1)
  - ACUTE HEPATIC FAILURE [None]
